FAERS Safety Report 12460169 (Version 3)
Quarter: 2016Q4

REPORT INFORMATION
  Report Type: Spontaneous
  Country: US (occurrence: US)
  Receive Date: 20160613
  Receipt Date: 20161101
  Transmission Date: 20170207
  Serious: No
  Sender: FDA-Public Use
  Company Number: US-PFIZER INC-2016294312

PATIENT
  Age: 46 Year
  Sex: Female

DRUGS (1)
  1. XELJANZ [Suspect]
     Active Substance: TOFACITINIB CITRATE
     Indication: RHEUMATOID ARTHRITIS
     Dosage: 5 MG, 1 TAB, 2X/DAY (FOR 1 1/2 MONTHS)
     Route: 048

REACTIONS (3)
  - Condition aggravated [Unknown]
  - Infection [Unknown]
  - Myalgia [Unknown]

NARRATIVE: CASE EVENT DATE: 20160522
